FAERS Safety Report 9372992 (Version 2)
Quarter: 2013Q3

REPORT INFORMATION
  Report Type: Spontaneous
  Country: AR (occurrence: AR)
  Receive Date: 20130627
  Receipt Date: 20130712
  Transmission Date: 20140515
  Serious: Yes (Other)
  Sender: FDA-Public Use
  Company Number: AR-BRISTOL-MYERS SQUIBB COMPANY-19029008

PATIENT
  Age: 49 Year
  Sex: Female

DRUGS (3)
  1. ONGLYZA TABS [Suspect]
     Indication: TYPE 2 DIABETES MELLITUS
     Route: 048
  2. METFORMIN HCL [Suspect]
  3. INSULIN NPH [Suspect]

REACTIONS (1)
  - Vasculitis [Not Recovered/Not Resolved]
